FAERS Safety Report 20969314 (Version 1)
Quarter: 2022Q2

REPORT INFORMATION
  Report Type: Spontaneous
  Country: None (occurrence: US)
  Receive Date: 20220616
  Receipt Date: 20220616
  Transmission Date: 20220720
  Serious: Yes (Other)
  Sender: FDA-Public Use
  Company Number: US-Edgewell Personal Care, LLC-2129993

PATIENT
  Age: 12 Year
  Sex: Male

DRUGS (1)
  1. BANANA BOAT SPORT ULTRA CLEAR SUNSCREEN BROAD SPECTRUM SPF 65 [Suspect]
     Active Substance: AVOBENZONE\HOMOSALATE\OCTISALATE\OCTOCRYLENE
     Indication: Prophylaxis against solar radiation
     Route: 061
     Dates: start: 20220529, end: 20220529

REACTIONS (3)
  - Pain [Recovering/Resolving]
  - Burns second degree [Recovering/Resolving]
  - Blister [Recovering/Resolving]

NARRATIVE: CASE EVENT DATE: 20220529
